FAERS Safety Report 9827422 (Version 1)
Quarter: 2013Q4

REPORT INFORMATION
  Report Type: Spontaneous
  Country: None (occurrence: None)
  Receive Date: 20131115
  Receipt Date: 20131115
  Transmission Date: 20140711
  Serious: Yes (Other)
  Sender: FDA-Public Use
  Company Number: 2013P1003513

PATIENT
  Age: 54 Year
  Sex: Male

DRUGS (1)
  1. INFUMORPH [Suspect]

REACTIONS (2)
  - Urinary retention [None]
  - Cellulitis [None]
